FAERS Safety Report 20720501 (Version 7)
Quarter: 2023Q1

REPORT INFORMATION
  Report Type: Spontaneous
  Country: GB (occurrence: GB)
  Receive Date: 20220418
  Receipt Date: 20230302
  Transmission Date: 20230418
  Serious: Yes (Death, Life-Threatening, Hospitalization, Disabling, Congenital Anomaly, Other)
  Sender: FDA-Public Use
  Company Number: None

PATIENT
  Age: 56 Year
  Sex: Male
  Weight: 92 kg

DRUGS (29)
  1. CIPROFLOXACIN [Interacting]
     Active Substance: CIPROFLOXACIN
     Indication: Depression
     Dosage: 1000 MG, QD
     Route: 065
     Dates: start: 20100917
  2. VENLAFAXINE [Interacting]
     Active Substance: VENLAFAXINE HYDROCHLORIDE
     Indication: Product used for unknown indication
     Dosage: 225 MG, DAILY, ONCE A DAY, PROLONGED RELEASE
     Route: 048
     Dates: start: 20100917
  3. IRBESARTAN [Interacting]
     Active Substance: IRBESARTAN
     Indication: Product used for unknown indication
     Dosage: 150 MG, QD
     Route: 048
     Dates: start: 20100912
  4. METHOTREXATE SODIUM [Interacting]
     Active Substance: METHOTREXATE SODIUM
     Indication: Rheumatoid arthritis
     Dosage: 18 MG WEEKLY, QW (AT 17.5, WEEKLY)
     Route: 048
     Dates: start: 20100917
  5. OMEPRAZOLE [Interacting]
     Active Substance: OMEPRAZOLE
     Indication: Abdominal discomfort
     Dosage: 20 MG, BID
     Route: 048
  6. PHYLLOCONTIN [Interacting]
     Active Substance: AMINOPHYLLINE
     Indication: Product used for unknown indication
     Dosage: 400 MG, QD
     Route: 065
     Dates: start: 20100917
  7. SIMVASTATIN [Interacting]
     Active Substance: SIMVASTATIN
     Indication: Product used for unknown indication
     Dosage: 20 MG (TABLET)
     Route: 048
  8. SULFAGUANIDINE [Interacting]
     Active Substance: SULFAGUANIDINE
     Indication: Product used for unknown indication
     Route: 048
  9. TAMSULOSIN HYDROCHLORIDE [Interacting]
     Active Substance: TAMSULOSIN HYDROCHLORIDE
     Indication: Product used for unknown indication
     Dosage: 400 MCG
     Route: 065
  10. DIPHENYLGUANIDINE [Interacting]
     Active Substance: DIPHENYLGUANIDINE
     Indication: Depression
     Dosage: 750 MILLIGRAM, ONCE A DAY
     Route: 065
  11. CARBAMAZEPINE [Interacting]
     Active Substance: CARBAMAZEPINE
     Indication: Product used for unknown indication
     Dosage: 750 MG, QD
     Route: 048
  12. CARBOCYSTEINE [Interacting]
     Active Substance: CARBOCYSTEINE
     Indication: Rheumatoid arthritis
     Dosage: 750 MILLIGRAM, ONCE A DAY
     Route: 048
     Dates: start: 20100917
  13. VENLAFAXINE HYDROCHLORIDE [Interacting]
     Active Substance: VENLAFAXINE HYDROCHLORIDE
     Indication: Depression
     Dosage: 225 MG, QD
     Route: 065
  14. DITIOCARB ZINC [Interacting]
     Active Substance: DITIOCARB ZINC
     Indication: Abdominal discomfort
     Dosage: 750 MG, QD
     Route: 065
  15. CLOZAPINE [Interacting]
     Active Substance: CLOZAPINE
     Indication: Product used for unknown indication
     Dosage: 8 MG, QD
     Route: 048
     Dates: start: 20200521, end: 202005
  16. CLOZARIL [Interacting]
     Active Substance: CLOZAPINE
     Indication: Schizophrenia
     Route: 048
     Dates: start: 20100917
  17. DEXAMETHASONE [Interacting]
     Active Substance: DEXAMETHASONE
     Indication: Abdominal discomfort
     Dosage: 8 MG, QD
     Route: 048
     Dates: start: 20200521, end: 20200528
  18. DITIOCARB [Interacting]
     Active Substance: DITIOCARB
     Indication: Abdominal discomfort
     Dosage: 750 MG, UNK
     Route: 065
  19. ENBREL [Interacting]
     Active Substance: ETANERCEPT
     Indication: Rheumatoid arthritis
     Dosage: 50 MG, WEEKLY
     Route: 042
     Dates: start: 20100917
  20. FOLIC ACID [Interacting]
     Active Substance: FOLIC ACID
     Indication: Product used for unknown indication
     Dosage: 5 MG
     Route: 048
  21. GUANIDINE [Interacting]
     Active Substance: GUANIDINE
     Indication: Depression
     Dosage: 750 MILLIGRAM, ONCE A DAY
     Route: 048
  22. BENDROFLUMETHIAZIDE [Concomitant]
     Active Substance: BENDROFLUMETHIAZIDE
     Indication: Pituitary tumour
     Dosage: UNKNOWN
     Route: 065
  23. CABERGOLINE [Concomitant]
     Active Substance: CABERGOLINE
     Indication: Pituitary tumour
     Dosage: UNKNOWN
     Route: 065
  24. CETIRIZINE [Concomitant]
     Active Substance: CETIRIZINE HYDROCHLORIDE
     Indication: Abdominal discomfort
     Dosage: UNKNOWN
     Route: 065
  25. CHARCOAL ACTIVATED [Concomitant]
     Active Substance: ACTIVATED CHARCOAL
     Indication: Product used for unknown indication
     Dosage: UNKNOWN
     Route: 065
  26. EZETIMIBE [Concomitant]
     Active Substance: EZETIMIBE
     Indication: Product used for unknown indication
     Dosage: UNKNOWN
     Route: 065
  27. FOLIC ACID [Concomitant]
     Active Substance: FOLIC ACID
     Indication: Product used for unknown indication
     Dosage: UNKNOWN
     Route: 065
  28. LEVOTHYROXINE [Concomitant]
     Active Substance: LEVOTHYROXINE
     Indication: Abdominal discomfort
     Dosage: UNKNOWN
     Route: 065
  29. ORUVAIL [Concomitant]
     Active Substance: KETOPROFEN
     Indication: Empty sella syndrome
     Dosage: UNKNOWN
     Route: 065

REACTIONS (37)
  - Lung neoplasm malignant [Fatal]
  - Condition aggravated [Fatal]
  - Radiation inflammation [Fatal]
  - Inflammation [Fatal]
  - Lower respiratory tract infection [Fatal]
  - Pulmonary pain [Fatal]
  - Abdominal discomfort [Fatal]
  - Knee arthroplasty [Fatal]
  - Rash [Fatal]
  - Arthropathy [Fatal]
  - COVID-19 [Fatal]
  - Schizophrenia [Fatal]
  - Drug abuse [Fatal]
  - Intentional product misuse [Fatal]
  - Product dose omission issue [Fatal]
  - Off label use [Fatal]
  - Overdose [Fatal]
  - Abdominal pain [Fatal]
  - Gastrointestinal pain [Fatal]
  - Contusion [Fatal]
  - Drug interaction [Fatal]
  - Diarrhoea [Fatal]
  - Abdominal pain upper [Fatal]
  - Feeling abnormal [Fatal]
  - Dementia [Fatal]
  - Food poisoning [Fatal]
  - Genital ulceration [Fatal]
  - Malaise [Fatal]
  - Irritable bowel syndrome [Fatal]
  - Mucosal inflammation [Fatal]
  - Nightmare [Fatal]
  - Blood potassium decreased [Fatal]
  - Illness [Fatal]
  - Oral pain [Fatal]
  - Peripheral swelling [Fatal]
  - Genital pain [Fatal]
  - Vomiting [Fatal]

NARRATIVE: CASE EVENT DATE: 20190121
